FAERS Safety Report 10024171 (Version 1)
Quarter: 2014Q1

REPORT INFORMATION
  Report Type: Spontaneous
  Country: US (occurrence: US)
  Receive Date: 20140320
  Receipt Date: 20140320
  Transmission Date: 20141002
  Serious: No
  Sender: FDA-Public Use
  Company Number: US-PFIZER INC-2014078761

PATIENT
  Sex: 0

DRUGS (1)
  1. TORISEL [Suspect]
     Indication: NEOPLASM MALIGNANT
     Dosage: 25 MG, UNK

REACTIONS (2)
  - Disease progression [Unknown]
  - Neoplasm malignant [Unknown]
